FAERS Safety Report 5537120-4 (Version None)
Quarter: 2007Q4

REPORT INFORMATION
  Report Type: 
  Country: None (occurrence: None)
  Receive Date: 20071205
  Receipt Date: 20071205
  Transmission Date: 20080405
  Serious: Yes (Life-Threatening, Hospitalization, Other)
  Sender: FDA-Public Use
  Company Number: None

PATIENT
  Sex: Female
  Weight: 117.9352 kg

DRUGS (1)
  1. PRIMIDONE [Suspect]
     Indication: FAMILIAL TREMOR
     Dosage: 200MG. TWICE DAILY PO
     Route: 048
     Dates: start: 20060101, end: 20071204

REACTIONS (8)
  - DRUG TOXICITY [None]
  - EXTRASYSTOLES [None]
  - LETHARGY [None]
  - LOSS OF CONSCIOUSNESS [None]
  - MEDICATION ERROR [None]
  - OVERDOSE [None]
  - VENTRICULAR EXTRASYSTOLES [None]
  - VENTRICULAR FIBRILLATION [None]
